FAERS Safety Report 17256091 (Version 1)
Quarter: 2020Q1

REPORT INFORMATION
  Report Type: Spontaneous
  Country: US (occurrence: US)
  Receive Date: 20200110
  Receipt Date: 20200110
  Transmission Date: 20200409
  Serious: No
  Sender: FDA-Public Use
  Company Number: US-TEVA-2020-US-1164787

PATIENT
  Sex: Female

DRUGS (1)
  1. PROAIR HFA [Suspect]
     Active Substance: ALBUTEROL SULFATE
     Route: 055

REACTIONS (8)
  - Headache [Unknown]
  - Flatulence [Unknown]
  - Therapeutic product effect delayed [Unknown]
  - Chest pain [Unknown]
  - Chest discomfort [Unknown]
  - Drug delivery system malfunction [Unknown]
  - Wrong product administered [Unknown]
  - Eructation [Unknown]
